FAERS Safety Report 6657486-1 (Version None)
Quarter: 2010Q1

REPORT INFORMATION
  Report Type: 
  Country: None (occurrence: None)
  Receive Date: 20100330
  Receipt Date: 20100323
  Transmission Date: 20100710
  Serious: Yes (Death, Other)
  Sender: FDA-Public Use
  Company Number: PHHY2010JP02051

PATIENT
  Sex: Male

DRUGS (2)
  1. DIOVAN [Suspect]
     Indication: HYPERTENSION
     Dosage: 80 MG DAILY
     Route: 048
     Dates: start: 20070912, end: 20091226
  2. NORVASC [Concomitant]
     Indication: HYPERTENSION
     Dosage: 5 MG, UNK
     Route: 048
     Dates: start: 20010101, end: 20091226

REACTIONS (3)
  - BLOOD POTASSIUM DECREASED [None]
  - GENERALISED OEDEMA [None]
  - SMALL CELL LUNG CANCER STAGE UNSPECIFIED [None]
